FAERS Safety Report 7996548-3 (Version None)
Quarter: 2011Q4

REPORT INFORMATION
  Report Type: 
  Country: None (occurrence: None)
  Receive Date: 20111221
  Receipt Date: 20111212
  Transmission Date: 20120403
  Serious: Yes (Hospitalization)
  Sender: FDA-Public Use
  Company Number: US-BIOGENIDEC-2011BI041315

PATIENT
  Age: 46 Year
  Sex: Female

DRUGS (3)
  1. ALPRAZOLAM [Concomitant]
  2. OMEPRAZOLE [Concomitant]
  3. TYSABRI [Suspect]
     Indication: MULTIPLE SCLEROSIS
     Route: 042
     Dates: start: 20080228, end: 20111001

REACTIONS (5)
  - ROAD TRAFFIC ACCIDENT [None]
  - DRUG SPECIFIC ANTIBODY PRESENT [None]
  - LOWER LIMB FRACTURE [None]
  - PELVIC FRACTURE [None]
  - MEDICAL DEVICE REMOVAL [None]
